FAERS Safety Report 7786141-X (Version None)
Quarter: 2011Q3

REPORT INFORMATION
  Report Type: 
  Country: None (occurrence: None)
  Receive Date: 20110929
  Receipt Date: 20110927
  Transmission Date: 20111222
  Serious: Yes (Other)
  Sender: FDA-Public Use
  Company Number: HU-PFIZER INC-2010151911

PATIENT
  Age: 43 Year
  Sex: Male
  Weight: 82 kg

DRUGS (8)
  1. LOSARTAN [Concomitant]
     Dosage: UNK
  2. TOLPERISONE [Concomitant]
     Dosage: UNK
  3. INDAPAMIDE [Concomitant]
     Dosage: UNK
  4. AFLAMIN [Concomitant]
     Dosage: UNK
  5. NEBIVOLOL [Concomitant]
     Dosage: UNK
  6. LYRICA [Suspect]
     Dosage: 75 MG, 2X/DAY
     Route: 048
     Dates: start: 20100101, end: 20100101
  7. LYRICA [Suspect]
     Indication: NEURALGIA
     Dosage: 75 MG, 2X/DAY
     Route: 048
     Dates: start: 20090701, end: 20090801
  8. MILURIT [Concomitant]
     Dosage: UNK

REACTIONS (3)
  - LIP SWELLING [None]
  - SWELLING FACE [None]
  - EYE SWELLING [None]
